FAERS Safety Report 16757870 (Version 1)
Quarter: 2019Q3

REPORT INFORMATION
  Report Type: Spontaneous
  Country: CA (occurrence: CA)
  Receive Date: 20190830
  Receipt Date: 20190830
  Transmission Date: 20191005
  Serious: Yes (Other)
  Sender: FDA-Public Use
  Company Number: CA-009507513-1908CAN010391

PATIENT
  Age: 58 Year
  Sex: Male

DRUGS (1)
  1. TEMOZOLOMIDE. [Suspect]
     Active Substance: TEMOZOLOMIDE
     Indication: ANAPLASTIC ASTROCYTOMA
     Dosage: UNK MILLIGRAM
     Route: 048
     Dates: start: 2016

REACTIONS (2)
  - Anaplastic astrocytoma [Unknown]
  - Neoplasm recurrence [Unknown]

NARRATIVE: CASE EVENT DATE: 201908
